FAERS Safety Report 8599522-1 (Version None)
Quarter: 2012Q3

REPORT INFORMATION
  Report Type: 
  Country: None (occurrence: None)
  Receive Date: 20120816
  Receipt Date: 20120723
  Transmission Date: 20120928
  Serious: No
  Sender: FDA-Public Use
  Company Number: US-ALLERGAN-1210171US

PATIENT
  Age: 87 Year
  Sex: Female

DRUGS (2)
  1. LASTACAFT [Suspect]
     Indication: EYE ALLERGY
     Dosage: 2 GTT, UNK
     Route: 047
  2. ALL KINDS OF (UNSPECIFIED) PRESCRIPTION EYE DROPS [Concomitant]
     Indication: PRODUCT USED FOR UNKNOWN INDICATION
     Dosage: UNK UNK, UNKNOWN
     Route: 047

REACTIONS (1)
  - DRUG INEFFECTIVE [None]
